FAERS Safety Report 7907357-5 (Version None)
Quarter: 2011Q4

REPORT INFORMATION
  Report Type: 
  Country: None (occurrence: None)
  Receive Date: 20111110
  Receipt Date: 20111105
  Transmission Date: 20120403
  Serious: Yes (Hospitalization)
  Sender: FDA-Public Use
  Company Number: DE-GLAXOSMITHKLINE-D0073294A

PATIENT
  Sex: Female
  Weight: 60 kg

DRUGS (4)
  1. TRIMIPRAMINE MALEATE [Suspect]
     Route: 048
     Dates: start: 20110610, end: 20110610
  2. LORAZEPAM [Suspect]
     Route: 048
     Dates: start: 20110610, end: 20110610
  3. LAMICTAL [Suspect]
     Route: 048
     Dates: start: 20110610, end: 20110610
  4. ESCITALOPRAM [Suspect]
     Dosage: 20MG SEE DOSAGE TEXT
     Route: 048
     Dates: start: 20110610, end: 20110610

REACTIONS (4)
  - VOMITING [None]
  - SUICIDE ATTEMPT [None]
  - SOMNOLENCE [None]
  - SOPOR [None]
